FAERS Safety Report 8732560 (Version 2)
Quarter: 2015Q2

REPORT INFORMATION
  Report Type: Report from Study
  Country: US (occurrence: US)
  Receive Date: 20120820
  Receipt Date: 20150625
  Transmission Date: 20150821
  Serious: Yes (Death, Hospitalization, Other)
  Sender: FDA-Public Use
  Company Number: US-ROCHE-1100572

PATIENT
  Age: 58 Year
  Sex: Male

DRUGS (23)
  1. LIDOCAINE DRIP [Concomitant]
     Route: 041
  2. HEPARIN [Concomitant]
     Active Substance: HEPARIN SODIUM
     Route: 042
  3. CARDIZEM [Concomitant]
     Active Substance: DILTIAZEM HYDROCHLORIDE
     Route: 065
     Dates: start: 19930522
  4. CAPOTEN [Concomitant]
     Active Substance: CAPTOPRIL
     Dosage: VERY LOW DOSE
     Route: 065
  5. PYRIDIUM [Concomitant]
     Active Substance: PHENAZOPYRIDINE
  6. SOLU-CORTEF [Concomitant]
     Active Substance: HYDROCORTISONE SODIUM SUCCINATE
  7. XANAX [Concomitant]
     Active Substance: ALPRAZOLAM
  8. ZANTAC [Concomitant]
     Active Substance: RANITIDINE HYDROCHLORIDE
  9. MORPHINE SULFATE. [Concomitant]
     Active Substance: MORPHINE SULFATE
  10. MEPERGAN [Concomitant]
     Active Substance: MEPERIDINE HYDROCHLORIDE\PROMETHAZINE HYDROCHLORIDE
  11. CAPOTEN [Concomitant]
     Active Substance: CAPTOPRIL
     Dosage: INCREASED
     Route: 065
  12. BENADRYL [Concomitant]
     Active Substance: DIPHENHYDRAMINE HYDROCHLORIDE
  13. EDECRIN [Concomitant]
     Active Substance: ETHACRYNIC ACID
  14. SURFAK (UNITED STATES) [Concomitant]
  15. ACTIVASE [Suspect]
     Active Substance: ALTEPLASE
     Indication: ACUTE MYOCARDIAL INFARCTION
     Route: 042
  16. DIGOXIN. [Concomitant]
     Active Substance: DIGOXIN
  17. POTASSIUM CHLORIDE. [Concomitant]
     Active Substance: POTASSIUM CHLORIDE
  18. TRIAVIL [Concomitant]
     Active Substance: AMITRIPTYLINE HYDROCHLORIDE\PERPHENAZINE
     Route: 041
  19. DARVOCET [Concomitant]
     Active Substance: ACETAMINOPHEN\PROPOXYPHENE HYDROCHLORIDE
  20. LIDOCAINE DRIP [Concomitant]
     Dosage: INCREASED DOSE
     Route: 065
  21. ATROPIN [Concomitant]
  22. DOXIDAN [Concomitant]
  23. LASIX [Concomitant]
     Active Substance: FUROSEMIDE

REACTIONS (7)
  - Ventricular tachycardia [Unknown]
  - Asthenia [Unknown]
  - Nausea [Unknown]
  - Vomiting [Unknown]
  - Hypotension [Unknown]
  - Death [Fatal]
  - Cardiogenic shock [Unknown]
